FAERS Safety Report 9944803 (Version 1)
Quarter: 2014Q1

REPORT INFORMATION
  Report Type: Report from Study
  Country: US (occurrence: US)
  Receive Date: 20140303
  Receipt Date: 20140303
  Transmission Date: 20141002
  Serious: No
  Sender: FDA-Public Use
  Company Number: US-ABBVIE-13P-163-1053407-00

PATIENT
  Age: 50 Year
  Sex: Male
  Weight: 68.55 kg

DRUGS (16)
  1. HUMIRA [Suspect]
     Indication: PSORIATIC ARTHROPATHY
     Dates: start: 20121231
  2. HUMIRA [Suspect]
     Indication: CROHN^S DISEASE
  3. HUMIRA [Suspect]
     Indication: ARTHRITIS REACTIVE
  4. HUMIRA [Suspect]
     Indication: REITER^S SYNDROME
  5. HUMIRA [Suspect]
     Indication: SPONDYLOARTHROPATHY
  6. COREG [Concomitant]
     Indication: BLOOD PRESSURE
  7. COREG [Concomitant]
     Indication: ARTERIOSPASM CORONARY
  8. COZAAR [Concomitant]
     Indication: BLOOD PRESSURE
  9. NORVASC [Concomitant]
     Indication: BLOOD PRESSURE
  10. NORVASC [Concomitant]
     Indication: ARTERIOSPASM CORONARY
  11. NARATRIPTAN [Concomitant]
     Indication: MIGRAINE
  12. AMBIEN [Concomitant]
     Indication: INSOMNIA
  13. CLARITIN EXTRA [Concomitant]
     Indication: SINUS CONGESTION
  14. BUTALBITAL [Concomitant]
     Indication: HEADACHE
  15. BUTALBITAL [Concomitant]
     Indication: PAIN
  16. NEOSYNEPHRINE [Concomitant]
     Indication: NASAL CONGESTION

REACTIONS (3)
  - Off label use [Not Recovered/Not Resolved]
  - Migraine [Not Recovered/Not Resolved]
  - Therapeutic response unexpected [Not Recovered/Not Resolved]
